FAERS Safety Report 20825734 (Version 1)
Quarter: 2022Q2

REPORT INFORMATION
  Report Type: Spontaneous
  Country: US (occurrence: US)
  Receive Date: 20220513
  Receipt Date: 20220513
  Transmission Date: 20220720
  Serious: Yes (Hospitalization, Disabling, Other)
  Sender: FDA-Public Use
  Company Number: US-SPECGX-T202201178

PATIENT

DRUGS (28)
  1. HYDROMORPHONE [Suspect]
     Active Substance: HYDROMORPHONE
     Indication: Limb injury
     Dosage: UNK
     Route: 065
     Dates: start: 2005, end: 2006
  2. HYDROMORPHONE [Suspect]
     Active Substance: HYDROMORPHONE
     Indication: Back pain
     Dosage: UNK
     Route: 065
     Dates: start: 2008, end: 2009
  3. OXYCODONE [Suspect]
     Active Substance: OXYCODONE
     Indication: Product used for unknown indication
     Dosage: UNK
     Route: 065
  4. ACETAMINOPHEN\OXYCODONE HYDROCHLORIDE [Suspect]
     Active Substance: ACETAMINOPHEN\OXYCODONE HYDROCHLORIDE
     Indication: Product used for unknown indication
     Dosage: UNK
     Route: 065
  5. MORPHINE [Suspect]
     Active Substance: MORPHINE
     Indication: Limb injury
     Dosage: UNK
     Route: 065
     Dates: start: 2004
  6. MORPHINE [Suspect]
     Active Substance: MORPHINE
     Indication: Back pain
     Dosage: UNK
     Route: 065
     Dates: start: 2008
  7. ACETAMINOPHEN\HYDROCODONE [Suspect]
     Active Substance: ACETAMINOPHEN\HYDROCODONE
     Indication: Back injury
     Dosage: UNK
     Route: 065
     Dates: start: 2008
  8. OXYCONTIN [Suspect]
     Active Substance: OXYCODONE HYDROCHLORIDE
     Indication: Procedural pain
     Dosage: UNK
     Route: 065
     Dates: start: 2002
  9. OXYCONTIN [Suspect]
     Active Substance: OXYCODONE HYDROCHLORIDE
     Indication: Back pain
     Dosage: UNK
     Route: 065
     Dates: start: 2008
  10. NORCO [Suspect]
     Active Substance: ACETAMINOPHEN\HYDROCODONE BITARTRATE
     Indication: Limb injury
     Dosage: UNK
     Route: 065
     Dates: start: 2004
  11. NORCO [Suspect]
     Active Substance: ACETAMINOPHEN\HYDROCODONE BITARTRATE
     Indication: Joint injury
     Dosage: UNK
     Route: 065
     Dates: start: 2007
  12. NORCO [Suspect]
     Active Substance: ACETAMINOPHEN\HYDROCODONE BITARTRATE
     Indication: Back pain
     Dosage: UNK
     Route: 065
     Dates: start: 2008
  13. DILAUDID [Suspect]
     Active Substance: HYDROMORPHONE HYDROCHLORIDE
     Indication: Limb injury
     Dosage: UNK
     Route: 065
     Dates: start: 2004
  14. DILAUDID [Suspect]
     Active Substance: HYDROMORPHONE HYDROCHLORIDE
     Indication: Back injury
     Dosage: UNK
     Route: 065
     Dates: start: 2005, end: 2006
  15. DILAUDID [Suspect]
     Active Substance: HYDROMORPHONE HYDROCHLORIDE
     Indication: Procedural pain
     Dosage: UNK
     Route: 065
     Dates: start: 2008, end: 2009
  16. OXYCODONE HYDROCHLORIDE [Suspect]
     Active Substance: OXYCODONE HYDROCHLORIDE
     Indication: Limb injury
     Dosage: UNK
     Route: 065
     Dates: start: 2005, end: 2006
  17. OXYCODONE HYDROCHLORIDE [Suspect]
     Active Substance: OXYCODONE HYDROCHLORIDE
     Indication: Back injury
     Dosage: UNK
     Route: 065
     Dates: start: 2009
  18. HYDROCODONE [Suspect]
     Active Substance: HYDROCODONE
     Indication: Limb injury
     Dosage: UNK
     Route: 065
     Dates: start: 2005, end: 2006
  19. HYDROCODONE [Suspect]
     Active Substance: HYDROCODONE
     Indication: Joint injury
     Dosage: UNK
     Route: 065
     Dates: start: 2007
  20. HYDROCODONE [Suspect]
     Active Substance: HYDROCODONE
     Indication: Back injury
     Dosage: UNK
     Route: 065
     Dates: start: 2008
  21. HYDROCODONE [Suspect]
     Active Substance: HYDROCODONE
     Indication: Procedural pain
     Dosage: UNK
     Route: 065
     Dates: start: 2009
  22. ACETAMINOPHEN\OXYCODONE HYDROCHLORIDE\OXYCODONE TEREPHTHALATE [Suspect]
     Active Substance: ACETAMINOPHEN\OXYCODONE HYDROCHLORIDE\OXYCODONE TEREPHTHALATE
     Indication: Joint injury
     Dosage: UNK
     Route: 065
     Dates: start: 2007
  23. ACETAMINOPHEN\OXYCODONE HYDROCHLORIDE\OXYCODONE TEREPHTHALATE [Suspect]
     Active Substance: ACETAMINOPHEN\OXYCODONE HYDROCHLORIDE\OXYCODONE TEREPHTHALATE
     Indication: Back injury
     Dosage: UNK
     Route: 065
     Dates: start: 2008
  24. ACETAMINOPHEN\OXYCODONE HYDROCHLORIDE\OXYCODONE TEREPHTHALATE [Suspect]
     Active Substance: ACETAMINOPHEN\OXYCODONE HYDROCHLORIDE\OXYCODONE TEREPHTHALATE
     Dosage: UNK
     Route: 065
     Dates: start: 2009
  25. OXYCODONE [Suspect]
     Active Substance: OXYCODONE
     Indication: Joint injury
     Dosage: UNK
     Route: 065
     Dates: start: 2007
  26. OXYCODONE [Suspect]
     Active Substance: OXYCODONE
     Indication: Back pain
     Dosage: UNK
     Route: 065
     Dates: start: 2008
  27. PHENTERMINE HYDROCHLORIDE [Suspect]
     Active Substance: PHENTERMINE HYDROCHLORIDE
     Indication: Joint injury
     Dosage: UNK
     Route: 065
     Dates: start: 2007
  28. VICODIN [Suspect]
     Active Substance: ACETAMINOPHEN\HYDROCODONE BITARTRATE
     Indication: Joint injury
     Dosage: UNK
     Route: 065
     Dates: start: 2002

REACTIONS (12)
  - Cardiac failure congestive [Unknown]
  - Arrhythmia [Not Recovered/Not Resolved]
  - Chest pain [Not Recovered/Not Resolved]
  - Palpitations [Unknown]
  - Imprisonment [Unknown]
  - Inguinal hernia [Unknown]
  - Drug dependence [Unknown]
  - Loss of personal independence in daily activities [Unknown]
  - Feeling abnormal [Unknown]
  - Hyporeflexia [Unknown]
  - Drug withdrawal syndrome [Unknown]
  - Crime [Unknown]

NARRATIVE: CASE EVENT DATE: 20080101
